FAERS Safety Report 10625456 (Version 1)
Quarter: 2014Q4

REPORT INFORMATION
  Report Type: Spontaneous
  Country: US (occurrence: None)
  Receive Date: 20141202
  Receipt Date: 20141202
  Transmission Date: 20150529
  Serious: Yes (Other)
  Sender: FDA-Public Use
  Company Number: 2014-00100

PATIENT
  Age: 77 Year
  Sex: Male
  Weight: 91.17 kg

DRUGS (3)
  1. BYSTOLIC [Concomitant]
     Active Substance: NEBIVOLOL HYDROCHLORIDE
  2. ZICAM INTENSE SINUS RELIEF [Suspect]
     Active Substance: OXYMETAZOLINE HYDROCHLORIDE
     Indication: NASAL CONGESTION
     Dosage: 1 SPRAY PER NOSTRIL NIGHTLY
     Route: 045
     Dates: start: 201409, end: 20141120
  3. LISINOPRIL. [Concomitant]
     Active Substance: LISINOPRIL

REACTIONS (3)
  - Pulmonary congestion [None]
  - Drug dependence [None]
  - Dry mouth [None]

NARRATIVE: CASE EVENT DATE: 2014
